FAERS Safety Report 23523591 (Version 1)
Quarter: 2024Q1

REPORT INFORMATION
  Report Type: Report from Study
  Country: GB (occurrence: GB)
  Receive Date: 20240214
  Receipt Date: 20240214
  Transmission Date: 20240410
  Serious: Yes (Life-Threatening, Hospitalization, Other)
  Sender: FDA-Public Use
  Company Number: GB-PFIZER INC-PV202400020910

PATIENT
  Age: 47 Year
  Sex: Female

DRUGS (1)
  1. METHYLPREDNISOLONE SODIUM SUCCINATE [Suspect]
     Active Substance: METHYLPREDNISOLONE SODIUM SUCCINATE
     Indication: Acute haemorrhagic leukoencephalitis
     Dosage: 1 G DAILY; HIGH DOSE, FOR 5 DAYS
     Route: 042

REACTIONS (1)
  - Drug ineffective [Recovering/Resolving]
